FAERS Safety Report 4652118-6 (Version None)
Quarter: 2005Q2

REPORT INFORMATION
  Report Type: 
  Country: None (occurrence: None)
  Receive Date: 20050502
  Receipt Date: 20050502
  Transmission Date: 20051028
  Serious: No
  Sender: FDA-Public Use
  Company Number: None

PATIENT
  Sex: Female
  Weight: 81.4 kg

DRUGS (1)
  1. CARMUSTINE [Suspect]
     Indication: ANAPLASTIC ASTROCYTOMA
     Dosage: 60 MG/M2, IV DAYS 1-3 EVERY TWO MONTHS (PATIENT WAS DOSE REDUCED AFTER FIRST CYCLE TO 60 MG M2)
     Route: 042
     Dates: start: 20040803

REACTIONS (2)
  - CHOLELITHIASIS [None]
  - PANCREATITIS [None]
